FAERS Safety Report 5902717-6 (Version None)
Quarter: 2008Q3

REPORT INFORMATION
  Report Type: 
  Country: None (occurrence: None)
  Receive Date: 20080929
  Receipt Date: 20080929
  Transmission Date: 20090109
  Serious: Yes (Other)
  Sender: FDA-Public Use
  Company Number: None

PATIENT
  Age: 64 Year
  Sex: Female
  Weight: 81.6475 kg

DRUGS (1)
  1. MUCINEX [Suspect]
     Indication: SINUSITIS
     Dosage: TAKE 1 EVERY 12 HRS
     Dates: start: 20080701

REACTIONS (2)
  - ASTHMA [None]
  - REACTION TO DRUG EXCIPIENTS [None]
